FAERS Safety Report 8037873-X (Version None)
Quarter: 2012Q1

REPORT INFORMATION
  Report Type: 
  Country: None (occurrence: None)
  Receive Date: 20120111
  Receipt Date: 20120103
  Transmission Date: 20120608
  Serious: Yes (Other)
  Sender: FDA-Public Use
  Company Number: US-ASTRAZENECA-2010SE51392

PATIENT
  Age: 887 Month
  Sex: Female
  Weight: 47.2 kg

DRUGS (8)
  1. LEVOTHYROXINE SODIUM [Concomitant]
  2. CRESTOR [Suspect]
     Route: 048
  3. ALPRAZOLAM [Concomitant]
  4. VITAMIN D [Concomitant]
  5. B6 [Concomitant]
  6. OMEGA 3 FATTY ACID [Concomitant]
     Dosage: DAILY
  7. ALPRAZOLAM [Concomitant]
  8. ASPIRIN [Concomitant]

REACTIONS (16)
  - CATARACT [None]
  - VISUAL IMPAIRMENT [None]
  - ECCHYMOSIS [None]
  - CARPAL TUNNEL SYNDROME [None]
  - MUSCULOSKELETAL DISORDER [None]
  - PARAESTHESIA [None]
  - IRIS HYPOPIGMENTATION [None]
  - NECK PAIN [None]
  - BACK PAIN [None]
  - TREATMENT NONCOMPLIANCE [None]
  - DRUG DOSE OMISSION [None]
  - HYPOAESTHESIA [None]
  - ILLUSION [None]
  - VISION BLURRED [None]
  - EYE DISORDER [None]
  - FEAR [None]
